FAERS Safety Report 7963276-X (Version None)
Quarter: 2011Q4

REPORT INFORMATION
  Report Type: 
  Country: None (occurrence: None)
  Receive Date: 20111208
  Receipt Date: 20111201
  Transmission Date: 20120403
  Serious: No
  Sender: FDA-Public Use
  Company Number: US-BIOGENIDEC-2011BI045627

PATIENT
  Age: 44 Year
  Sex: Female

DRUGS (1)
  1. TYSABRI [Suspect]
     Indication: MULTIPLE SCLEROSIS
     Route: 042
     Dates: start: 20070419

REACTIONS (8)
  - FEELING ABNORMAL [None]
  - DISTURBANCE IN ATTENTION [None]
  - BREAST MASS [None]
  - HEMIPARESIS [None]
  - DYSARTHRIA [None]
  - MOBILITY DECREASED [None]
  - IMPATIENCE [None]
  - EMOTIONAL DISTRESS [None]
